FAERS Safety Report 4339477-9 (Version None)
Quarter: 2004Q2

REPORT INFORMATION
  Report Type: 
  Country: None (occurrence: None)
  Receive Date: 20040415
  Receipt Date: 20020307
  Transmission Date: 20050107
  Serious: Yes (Hospitalization)
  Sender: FDA-Public Use
  Company Number: US-ROCHE-308908

PATIENT
  Age: 72 Year
  Sex: Female
  Weight: 70.3 kg

DRUGS (5)
  1. POSICOR [Suspect]
     Indication: HYPERTENSION
     Route: 048
     Dates: start: 19971119
  2. PROCARDIA XL [Concomitant]
     Route: 048
     Dates: start: 19971126
  3. CALCIUM GLUCONATE [Concomitant]
     Route: 042
     Dates: start: 19971126
  4. ATROPINE [Concomitant]
     Route: 042
     Dates: start: 19971127
  5. DITROPAN [Concomitant]
     Route: 048
     Dates: start: 19971119, end: 20010906

REACTIONS (63)
  - ACQUIRED DIAPHRAGMATIC EVENTRATION [None]
  - AGITATION [None]
  - AMNESIA [None]
  - ANXIETY [None]
  - ARRHYTHMIA [None]
  - ARTHRALGIA [None]
  - ATELECTASIS [None]
  - ATRIAL BIGEMINY [None]
  - ATRIOVENTRICULAR BLOCK COMPLETE [None]
  - BALANCE DISORDER [None]
  - BLOOD CHOLESTEROL INCREASED [None]
  - BLOOD GLUCOSE INCREASED [None]
  - BRADYCARDIA [None]
  - CARDIOMEGALY [None]
  - CEREBRAL ATROPHY [None]
  - CEREBRAL HAEMORRHAGE [None]
  - CHEST X-RAY ABNORMAL [None]
  - CONFUSIONAL STATE [None]
  - COUGH [None]
  - CYANOSIS [None]
  - DEMENTIA ALZHEIMER'S TYPE [None]
  - DEPRESSED LEVEL OF CONSCIOUSNESS [None]
  - DEPRESSION [None]
  - DIABETIC KETOACIDOSIS [None]
  - DIAPHRAGMATIC DISORDER [None]
  - DIFFICULTY IN WALKING [None]
  - DIZZINESS [None]
  - DYSPNOEA [None]
  - ENCEPHALOPATHY [None]
  - EUPHORIC MOOD [None]
  - FATIGUE [None]
  - HAEMORRHAGE [None]
  - HEMIPARESIS [None]
  - HYPOAESTHESIA [None]
  - HYPOTENSION [None]
  - INCONTINENCE [None]
  - INCREASED UPPER AIRWAY SECRETION [None]
  - LACTIC ACIDOSIS [None]
  - LACUNAR INFARCTION [None]
  - MENTAL STATUS CHANGES [None]
  - METABOLIC ACIDOSIS [None]
  - METABOLIC ENCEPHALOPATHY [None]
  - MITRAL VALVE INCOMPETENCE [None]
  - MYOCARDIAL INFARCTION [None]
  - NASAL CONGESTION [None]
  - NASOPHARYNGITIS [None]
  - NOCTURIA [None]
  - NODAL ARRHYTHMIA [None]
  - PHARYNGOLARYNGEAL PAIN [None]
  - POLLAKIURIA [None]
  - PULMONARY CONGESTION [None]
  - RED BLOOD CELL COUNT DECREASED [None]
  - RENAL FAILURE [None]
  - RENAL FAILURE ACUTE [None]
  - RENAL TUBULAR NECROSIS [None]
  - RESPIRATORY ARREST [None]
  - RHABDOMYOLYSIS [None]
  - SEPSIS [None]
  - SNEEZING [None]
  - SPUTUM DISCOLOURED [None]
  - URINARY RETENTION [None]
  - URINARY TRACT INFECTION [None]
  - URINARY TRACT INFECTION FUNGAL [None]
